FAERS Safety Report 11541101 (Version 4)
Quarter: 2016Q1

REPORT INFORMATION
  Report Type: Spontaneous
  Country: US (occurrence: US)
  Receive Date: 20150923
  Receipt Date: 20160108
  Transmission Date: 20160525
  Serious: No
  Sender: FDA-Public Use
  Company Number: US-PFIZER INC-2015305611

PATIENT
  Age: 29 Year
  Sex: Male
  Weight: 98 kg

DRUGS (4)
  1. SUTENT [Suspect]
     Active Substance: SUNITINIB MALATE
     Indication: METASTATIC RENAL CELL CARCINOMA
     Dosage: 50 MG, CYCLIC (28 DAYS ON/14 DAYS OFF)
     Dates: start: 20150827, end: 20151214
  2. MIRACLE MOUTH WASH [Concomitant]
     Active Substance: UNSPECIFIED INGREDIENT
     Dosage: UNK
  3. SUTENT [Suspect]
     Active Substance: SUNITINIB MALATE
     Indication: RENAL CANCER STAGE IV
  4. EFFEXOR XR [Concomitant]
     Active Substance: VENLAFAXINE HYDROCHLORIDE
     Dosage: UNK

REACTIONS (12)
  - Secretion discharge [Unknown]
  - Metastatic renal cell carcinoma [Unknown]
  - Rash [Unknown]
  - Glossitis [Unknown]
  - Skin exfoliation [Unknown]
  - Headache [Unknown]
  - Dyspepsia [Unknown]
  - Haemoptysis [Unknown]
  - Nausea [Unknown]
  - Disease progression [Unknown]
  - Fatigue [Unknown]
  - Cough [Unknown]

NARRATIVE: CASE EVENT DATE: 201509
